FAERS Safety Report 12984043 (Version 1)
Quarter: 2016Q4

REPORT INFORMATION
  Report Type: Spontaneous
  Country: IT (occurrence: IT)
  Receive Date: 20161129
  Receipt Date: 20161129
  Transmission Date: 20170207
  Serious: Yes (Hospitalization)
  Sender: FDA-Public Use
  Company Number: IT-PFIZER INC-2016553212

PATIENT
  Age: 84 Year
  Sex: Male

DRUGS (1)
  1. XANAX [Suspect]
     Active Substance: ALPRAZOLAM
     Indication: INSOMNIA
     Dosage: 20 ML, TOTAL
     Dates: start: 20161123, end: 20161123

REACTIONS (3)
  - Intentional product misuse [Unknown]
  - Bradyphrenia [Unknown]
  - Medication error [Unknown]

NARRATIVE: CASE EVENT DATE: 20161123
